FAERS Safety Report 11150818 (Version 6)
Quarter: 2015Q4

REPORT INFORMATION
  Report Type: Report from Study
  Country: US (occurrence: US)
  Receive Date: 20150601
  Receipt Date: 20151004
  Transmission Date: 20160304
  Serious: No
  Sender: FDA-Public Use
  Company Number: US-AMGEN-USASL2015051988

PATIENT
  Age: 72 Year
  Sex: Female

DRUGS (3)
  1. NEURONTIN [Suspect]
     Active Substance: GABAPENTIN
     Indication: PRODUCT USED FOR UNKNOWN INDICATION
     Dosage: UNK
     Route: 065
  2. METHOTREXATE [Concomitant]
     Active Substance: METHOTREXATE
     Dosage: UNK
  3. ENBREL [Suspect]
     Active Substance: ETANERCEPT
     Indication: RHEUMATOID ARTHRITIS
     Dosage: 50 MG, QWK
     Route: 065
     Dates: start: 20150430

REACTIONS (18)
  - Back disorder [Unknown]
  - Red blood cell count abnormal [Not Recovered/Not Resolved]
  - Hypoaesthesia [Unknown]
  - Muscle spasms [Unknown]
  - Joint swelling [Unknown]
  - Fatigue [Not Recovered/Not Resolved]
  - Restless legs syndrome [Unknown]
  - Peripheral swelling [Unknown]
  - Injection site bruising [Recovered/Resolved]
  - Vascular injury [Recovered/Resolved]
  - White blood cell count abnormal [Not Recovered/Not Resolved]
  - Nasopharyngitis [Not Recovered/Not Resolved]
  - Musculoskeletal discomfort [Not Recovered/Not Resolved]
  - Inflammation [Unknown]
  - Adverse drug reaction [Unknown]
  - Sciatica [Unknown]
  - Anxiety [Unknown]
  - Nerve injury [Unknown]

NARRATIVE: CASE EVENT DATE: 2015
